FAERS Safety Report 26203646 (Version 1)
Quarter: 2025Q4

REPORT INFORMATION
  Report Type: Report from Study
  Country: BR (occurrence: BR)
  Receive Date: 20251226
  Receipt Date: 20251226
  Transmission Date: 20260117
  Serious: Yes (Hospitalization)
  Sender: JOHNSON AND JOHNSON
  Company Number: BR-JNJFOC-20251232470

PATIENT
  Age: 60 Year
  Sex: Male
  Weight: 115 kg

DRUGS (1)
  1. INFLIXIMAB [Suspect]
     Active Substance: INFLIXIMAB
     Indication: Crohn^s disease
     Dosage: LAST INFUSION 7-AUG-2025
     Route: 041

REACTIONS (2)
  - Gastrointestinal neoplasm [Unknown]
  - Anaemia [Unknown]

NARRATIVE: CASE EVENT DATE: 20251001
